FAERS Safety Report 19621400 (Version 4)
Quarter: 2022Q1

REPORT INFORMATION
  Report Type: Report from Study
  Country: CA (occurrence: CA)
  Receive Date: 20210728
  Receipt Date: 20220202
  Transmission Date: 20220423
  Serious: Yes (Other)
  Sender: FDA-Public Use
  Company Number: CA-JNJFOC-20210712220

PATIENT
  Age: 48 Year
  Sex: Male
  Weight: 113 kg

DRUGS (4)
  1. REMICADE [Suspect]
     Active Substance: INFLIXIMAB
     Indication: Colitis ulcerative
     Dosage: THE PATIENT RECEIVED 8TH 600 MG INFLIXIMAB INFUSION ON 20-NOV-2021
     Route: 042
     Dates: start: 20210518
  2. REMICADE [Suspect]
     Active Substance: INFLIXIMAB
     Dosage: ON 22-JUL-2021, THE PATIENT RECEIVED 4TH DOSE OF 600 MG
     Route: 042
     Dates: start: 2021
  3. PREDNISONE [Concomitant]
     Active Substance: PREDNISONE
     Indication: Product used for unknown indication
     Dosage: RESTARTED
     Route: 065
  4. SALOFALK ENEMA [Concomitant]
     Indication: Product used for unknown indication
     Route: 065

REACTIONS (7)
  - Rectal haemorrhage [Recovered/Resolved]
  - Clostridium difficile infection [Recovered/Resolved]
  - General physical health deterioration [Not Recovered/Not Resolved]
  - Frequent bowel movements [Not Recovered/Not Resolved]
  - Infusion related reaction [Recovered/Resolved]
  - Off label use [Unknown]
  - Product use issue [Unknown]

NARRATIVE: CASE EVENT DATE: 20210101
